FAERS Safety Report 9261262 (Version 1)
Quarter: 2013Q2

REPORT INFORMATION
  Report Type: Spontaneous
  Country: GB (occurrence: GB)
  Receive Date: 20130429
  Receipt Date: 20130429
  Transmission Date: 20140414
  Serious: Yes (Other)
  Sender: FDA-Public Use
  Company Number: GB-BAYER-2013-053099

PATIENT
  Age: 62 Year
  Sex: Female

DRUGS (8)
  1. NIFEDIPINE [Suspect]
     Indication: HYPERTENSION
     Dosage: 30 MG, QD
     Route: 048
     Dates: start: 20130414, end: 20130415
  2. AMOXICILLIN [Concomitant]
     Dosage: 500 MG, UNK
  3. CANDESARTAN [Concomitant]
     Dosage: 4 MG, UNK
  4. DIXARIT [Concomitant]
     Dosage: 25 ?G, UNK
  5. LEVOTHYROXINE [Concomitant]
     Dosage: 100 ?G, UNK
  6. LEVOTHYROXINE [Concomitant]
     Dosage: 25 ?G, UNK
  7. LEVOTHYROXINE [Concomitant]
     Dosage: 50 ?G, UNK
  8. MUCODYNE [Concomitant]
     Dosage: 375 MG, UNK

REACTIONS (4)
  - Feeling abnormal [Recovering/Resolving]
  - Flushing [Recovering/Resolving]
  - Headache [Recovering/Resolving]
  - Malaise [Unknown]
